FAERS Safety Report 8502773-5 (Version None)
Quarter: 2012Q3

REPORT INFORMATION
  Report Type: 
  Country: None (occurrence: None)
  Receive Date: 20120706
  Receipt Date: 20120706
  Transmission Date: 20120928
  Serious: Yes (Death)
  Sender: FDA-Public Use
  Company Number: None

PATIENT
  Sex: Female
  Weight: 58.9676 kg

DRUGS (3)
  1. ONDANSETRON INJ 4 MG/ML WESTWARD [Suspect]
     Indication: NAUSEA
     Dosage: 4 MG IV BOLUS
     Route: 040
     Dates: start: 20120619, end: 20120621
  2. ONDANSETRON INJ 4 MG/ML WESTWARD [Suspect]
     Indication: VOMITING
     Dosage: 4 MG IV BOLUS
     Route: 040
     Dates: start: 20120619, end: 20120621
  3. ONDANSETRON INJ 4 MG/ML WESTWARD [Suspect]

REACTIONS (6)
  - ANXIETY [None]
  - VOMITING [None]
  - RESPIRATORY FAILURE [None]
  - CARDIO-RESPIRATORY ARREST [None]
  - METABOLIC ACIDOSIS [None]
  - IRRITABILITY [None]
